FAERS Safety Report 24562927 (Version 2)
Quarter: 2024Q4

REPORT INFORMATION
  Report Type: Report from Study
  Country: US (occurrence: US)
  Receive Date: 20241030
  Receipt Date: 20241122
  Transmission Date: 20250114
  Serious: Yes (Hospitalization, Other)
  Sender: ABBVIE
  Company Number: US-ABBVIE-5978544

PATIENT
  Age: 62 Year
  Sex: Male
  Weight: 99.79 kg

DRUGS (6)
  1. RINVOQ [Suspect]
     Active Substance: UPADACITINIB
     Indication: Crohn^s disease
     Route: 048
     Dates: start: 20240415, end: 202409
  2. CIALIS [Concomitant]
     Active Substance: TADALAFIL
     Indication: Prostatic disorder
  3. FLONASE [Concomitant]
     Active Substance: FLUTICASONE PROPIONATE
     Indication: Hypersensitivity
  4. LUTEIN [Concomitant]
     Active Substance: LUTEIN
     Indication: Prostatic disorder
  5. SYNTHROID [Concomitant]
     Active Substance: LEVOTHYROXINE SODIUM
     Indication: Hyperthyroidism
  6. ZYRTEC [Concomitant]
     Active Substance: CETIRIZINE HYDROCHLORIDE
     Indication: Hypersensitivity

REACTIONS (5)
  - Pulmonary hypertension [Unknown]
  - Pulmonary embolism [Recovering/Resolving]
  - Troponin increased [Unknown]
  - Fibrin D dimer increased [Unknown]
  - Drug hypersensitivity [Unknown]

NARRATIVE: CASE EVENT DATE: 20240101
